FAERS Safety Report 5531063-8 (Version None)
Quarter: 2007Q4

REPORT INFORMATION
  Report Type: 
  Country: None (occurrence: None)
  Receive Date: 20071130
  Receipt Date: 20061006
  Transmission Date: 20080405
  Serious: No
  Sender: FDA-Public Use
  Company Number: US-BOEHRINGER INGELHEIM PHARMACEUTICALS, INC.-2007-BP-00611BP

PATIENT
  Age: 35 Year
  Sex: Female

DRUGS (3)
  1. ZANTAC 150 [Suspect]
     Indication: DYSPEPSIA
     Route: 048
  2. PROPRANOLOL [Suspect]
     Indication: HEADACHE
     Route: 048
     Dates: start: 20030101
  3. OMEPRAZOLE [Suspect]
     Route: 048

REACTIONS (1)
  - NAUSEA [None]
